FAERS Safety Report 23411327 (Version 1)
Quarter: 2024Q1

REPORT INFORMATION
  Report Type: Spontaneous
  Country: US (occurrence: None)
  Receive Date: 20240117
  Receipt Date: 20240117
  Transmission Date: 20240410
  Serious: Yes (Hospitalization)
  Sender: FDA-Public Use
  Company Number: None

PATIENT
  Sex: Male

DRUGS (2)
  1. DEFEROXAMINE MESYLATE [Suspect]
     Active Substance: DEFEROXAMINE MESYLATE
     Indication: Sickle cell disease
     Dosage: FREQUENCY : WEEKLY;?
     Route: 042
     Dates: start: 202205
  2. DIPHENHYDRAMINE [Concomitant]

REACTIONS (1)
  - Pain [None]
